FAERS Safety Report 4655278-6 (Version None)
Quarter: 2005Q2

REPORT INFORMATION
  Report Type: 
  Country: None (occurrence: None)
  Receive Date: 20050401
  Receipt Date: 20050211
  Transmission Date: 20051028
  Serious: No
  Sender: FDA-Public Use
  Company Number: SU-2004-002586

PATIENT
  Age: 85 Year
  Sex: Female
  Weight: 62.5964 kg

DRUGS (5)
  1. BENICAR HCT [Suspect]
     Indication: HYPERTENSION
     Dosage: 20.125 MG QD PO
     Route: 048
     Dates: start: 20040601
  2. PLAVIX [Concomitant]
  3. VITAMINS [Concomitant]
  4. THERA-M [Concomitant]
  5. ZINC [Concomitant]

REACTIONS (4)
  - BLOOD PRESSURE DIASTOLIC DECREASED [None]
  - BLOOD PRESSURE INCREASED [None]
  - FATIGUE [None]
  - NAUSEA [None]
